FAERS Safety Report 7433934-4 (Version None)
Quarter: 2011Q2

REPORT INFORMATION
  Report Type: 
  Country: None (occurrence: None)
  Receive Date: 20110418
  Receipt Date: 20110404
  Transmission Date: 20111010
  Serious: Yes (Other)
  Sender: FDA-Public Use
  Company Number: 1000019994

PATIENT
  Age: 46 Year
  Sex: Female
  Weight: 98 kg

DRUGS (5)
  1. CITALOPRAM HYDROBROMIDE [Suspect]
     Indication: DEPRESSION
     Dosage: 40 MG (40 MG, 1 IN 1 D), ORAL
     Route: 048
  2. CO-CODAMOL (CODEINE PHOSPHATE, PARACETAMOL) (CODEINE PHOSPHATE, PARACE [Concomitant]
  3. ORLISTAT (ORLISTAT) (ORLISTAT) [Concomitant]
  4. CITALOPRAM HYDROBROMIDE [Suspect]
     Indication: DEPRESSION
     Dosage: 60 MG (60 MG, 1 IN 1 D), ORAL
     Route: 048
  5. AMLODIPINE [Concomitant]

REACTIONS (2)
  - LACUNAR INFARCTION [None]
  - CEREBROVASCULAR ACCIDENT [None]
